FAERS Safety Report 13402512 (Version 3)
Quarter: 2017Q3

REPORT INFORMATION
  Report Type: Report from Study
  Country: None (occurrence: RO)
  Receive Date: 20170404
  Receipt Date: 20170703
  Transmission Date: 20171127
  Serious: Yes (Death, Hospitalization)
  Sender: FDA-Public Use
  Company Number: RO-ABBVIE-17P-135-1928527-00

PATIENT
  Age: 80 Year
  Sex: Male

DRUGS (1)
  1. DUODOPA [Suspect]
     Active Substance: CARBIDOPA\LEVODOPA
     Indication: PARKINSON^S DISEASE
     Dosage: MD= 3/1.5 ML, CR=5.8/2.5ML/H, ED 2.6/1.5 ML
     Route: 050
     Dates: start: 20121011, end: 20170628

REACTIONS (4)
  - Cardio-respiratory arrest [Fatal]
  - Lung infection [Recovered/Resolved]
  - Gastroenteritis clostridial [Recovered/Resolved]
  - Pulmonary congestion [Recovered/Resolved]

NARRATIVE: CASE EVENT DATE: 20170317
